FAERS Safety Report 21674883 (Version 3)
Quarter: 2023Q1

REPORT INFORMATION
  Report Type: Report from Study
  Country: IT (occurrence: IT)
  Receive Date: 20221202
  Receipt Date: 20230207
  Transmission Date: 20230418
  Serious: Yes (Other)
  Sender: FDA-Public Use
  Company Number: IT-002147023-NVSC2022IT213531

PATIENT

DRUGS (5)
  1. RUXOLITINIB [Suspect]
     Active Substance: RUXOLITINIB
     Indication: Myelofibrosis
     Dosage: UNK, QD (40)
     Route: 065
     Dates: start: 20210506, end: 20210818
  2. RUXOLITINIB [Suspect]
     Active Substance: RUXOLITINIB
     Dosage: UNK, QD (20)
     Route: 065
     Dates: start: 20210819, end: 20220119
  3. RUXOLITINIB [Suspect]
     Active Substance: RUXOLITINIB
     Dosage: UNK, QD (40)
     Route: 065
     Dates: start: 20220120, end: 20220202
  4. RUXOLITINIB [Suspect]
     Active Substance: RUXOLITINIB
     Dosage: UNK, QD (20)
     Route: 065
     Dates: start: 20220203
  5. RUXOLITINIB [Suspect]
     Active Substance: RUXOLITINIB
     Dosage: 40 MG
     Route: 048

REACTIONS (5)
  - Chronic kidney disease [Recovered/Resolved]
  - Blood creatinine increased [Unknown]
  - Diarrhoea [Unknown]
  - Hypertriglyceridaemia [Unknown]
  - Inappropriate schedule of product administration [Unknown]

NARRATIVE: CASE EVENT DATE: 20210506
